FAERS Safety Report 5768131-1 (Version None)
Quarter: 2008Q2

REPORT INFORMATION
  Report Type: 
  Country: None (occurrence: None)
  Receive Date: 20080606
  Receipt Date: 20080529
  Transmission Date: 20081010
  Serious: Yes (Other)
  Sender: FDA-Public Use
  Company Number: 6040660

PATIENT
  Age: 67 Year
  Sex: Female

DRUGS (6)
  1. BISOPROLOL FUMARATE [Suspect]
     Indication: MYOCARDIAL INFARCTION
  2. ASPIRIN [Suspect]
     Indication: MYOCARDIAL INFARCTION
  3. RAMIPRIL [Suspect]
  4. SIMVASTATIN [Suspect]
     Indication: MYOCARDIAL INFARCTION
  5. CLOPIDOGREL [Suspect]
     Indication: MYOCARDIAL INFARCTION
  6. PREGABALIN (PREGABALIN) [Suspect]
     Indication: TRIGEMINAL NEURALGIA
     Dosage: 600 MG (300 MG, 2 IN 1 D)

REACTIONS (3)
  - DRUG INEFFECTIVE [None]
  - DRUG INTERACTION [None]
  - MYOCARDIAL INFARCTION [None]
